FAERS Safety Report 20495503 (Version 4)
Quarter: 2022Q3

REPORT INFORMATION
  Report Type: Spontaneous
  Country: MX (occurrence: MX)
  Receive Date: 20220221
  Receipt Date: 20220819
  Transmission Date: 20221026
  Serious: Yes (Hospitalization, Other)
  Sender: FDA-Public Use
  Company Number: MX-UCBSA-2022007933

PATIENT
  Sex: Female
  Weight: 63 kg

DRUGS (9)
  1. CIMZIA [Suspect]
     Active Substance: CERTOLIZUMAB PEGOL
     Indication: Rheumatoid arthritis
     Dosage: 200 MILLIGRAM, EV 2 WEEKS(QOW)
     Route: 058
     Dates: start: 202005, end: 202107
  2. COMBIVENT [Concomitant]
     Active Substance: ALBUTEROL SULFATE\IPRATROPIUM BROMIDE
     Indication: Asthma
  3. NEBIVOLOL HYDROCHLORIDE [Concomitant]
     Active Substance: NEBIVOLOL HYDROCHLORIDE
     Indication: Hypertension
  4. ELATEC [Concomitant]
     Indication: Hypertension
  5. PAROXETINE [Concomitant]
     Active Substance: PAROXETINE
     Indication: Product used for unknown indication
  6. FOLIC ACID [Concomitant]
     Active Substance: FOLIC ACID
     Indication: Product used for unknown indication
  7. ETHAMBUTOL [Concomitant]
     Active Substance: ETHAMBUTOL HYDROCHLORIDE
     Indication: Intestinal tuberculosis
  8. ISONIAZID [Concomitant]
     Active Substance: ISONIAZID
     Indication: Intestinal tuberculosis
  9. RAPTEN [DICLOFENAC SODIUM] [Concomitant]
     Indication: Rheumatoid arthritis

REACTIONS (4)
  - Intestinal tuberculosis [Not Recovered/Not Resolved]
  - Pyrexia [Recovered/Resolved]
  - Head deformity [Recovered/Resolved]
  - Foot deformity [Recovered/Resolved]

NARRATIVE: CASE EVENT DATE: 20210101
